FAERS Safety Report 17599424 (Version 1)
Quarter: 2020Q1

REPORT INFORMATION
  Report Type: Spontaneous
  Country: CA (occurrence: CA)
  Receive Date: 20200330
  Receipt Date: 20200330
  Transmission Date: 20200409
  Serious: Yes (Other)
  Sender: FDA-Public Use
  Company Number: CA-TEVA-2020-CA-1216417

PATIENT
  Sex: Male

DRUGS (21)
  1. LEVETIRACETAM. [Suspect]
     Active Substance: LEVETIRACETAM
     Indication: SEIZURE
     Route: 065
  2. DIAZEPAM. [Suspect]
     Active Substance: DIAZEPAM
     Route: 054
  3. LEVETIRACETAM. [Suspect]
     Active Substance: LEVETIRACETAM
     Route: 065
  4. LAMOTRIGINE. [Suspect]
     Active Substance: LAMOTRIGINE
     Indication: SEIZURE
     Route: 065
  5. TOPIRAMATE. [Suspect]
     Active Substance: TOPIRAMATE
     Indication: SEIZURE
     Route: 065
  6. APO-CLOBAZAM [Suspect]
     Active Substance: CLOBAZAM
     Indication: SEIZURE
     Route: 065
  7. APO-LAMOTRIGINE [Suspect]
     Active Substance: LAMOTRIGINE
     Indication: SEIZURE
     Route: 065
  8. PARALDEHYDE [Suspect]
     Active Substance: PARALDEHYDE
     Indication: SEIZURE
     Route: 065
  9. PHENOBARBITONE [PHENOBARBITAL] [Suspect]
     Active Substance: PHENOBARBITAL
     Indication: SEIZURE
     Route: 065
  10. CARBAMAZEPINE. [Suspect]
     Active Substance: CARBAMAZEPINE
     Indication: SEIZURE
     Route: 065
  11. APO-CARBAMAZEPINE [Suspect]
     Active Substance: CARBAMAZEPINE
     Indication: SEIZURE
     Route: 065
  12. APO-TOPIRAMATE [Suspect]
     Active Substance: TOPIRAMATE
     Indication: SEIZURE
     Route: 065
  13. DIAZEPAM. [Suspect]
     Active Substance: DIAZEPAM
     Route: 065
  14. CARBAMAZEPINE. [Suspect]
     Active Substance: CARBAMAZEPINE
     Indication: SEIZURE
     Route: 065
  15. DIAZEPAM. [Suspect]
     Active Substance: DIAZEPAM
     Indication: PRODUCT USED FOR UNKNOWN INDICATION
     Route: 050
  16. MIDAZOLAM. [Suspect]
     Active Substance: MIDAZOLAM
     Route: 065
  17. CLOBAZAM. [Suspect]
     Active Substance: CLOBAZAM
     Indication: SEIZURE
     Route: 065
  18. MIDAZOLAM. [Suspect]
     Active Substance: MIDAZOLAM
     Indication: SEIZURE
     Route: 060
  19. PHENYTOIN. [Suspect]
     Active Substance: PHENYTOIN
     Indication: SEIZURE
     Route: 065
  20. DIAZEPAM. [Suspect]
     Active Substance: DIAZEPAM
     Route: 065
  21. PHENOBARBITAL. [Suspect]
     Active Substance: PHENOBARBITAL
     Indication: SEIZURE
     Route: 065

REACTIONS (6)
  - Drug resistance [Unknown]
  - Seizure [Unknown]
  - Drug ineffective [Unknown]
  - Off label use [Unknown]
  - Sedation [Unknown]
  - Therapeutic product effect incomplete [Unknown]
